FAERS Safety Report 14045051 (Version 3)
Quarter: 2018Q1

REPORT INFORMATION
  Report Type: Report from Study
  Country: US (occurrence: US)
  Receive Date: 20171005
  Receipt Date: 20180111
  Transmission Date: 20180508
  Serious: Yes (Hospitalization, Other)
  Sender: FDA-Public Use
  Company Number: US-AMGEN-USASL2017147846

PATIENT
  Age: 59 Year
  Sex: Female

DRUGS (2)
  1. REPATHA [Suspect]
     Active Substance: EVOLOCUMAB
     Indication: HYPERLIPIDAEMIA
     Dosage: 140 MG, Q2WK (TWICE MONTHLY)
     Route: 065
     Dates: end: 201611
  2. REPATHA [Suspect]
     Active Substance: EVOLOCUMAB
     Indication: HYPERCHOLESTEROLAEMIA

REACTIONS (5)
  - Angioplasty [Unknown]
  - Abdominal distension [Not Recovered/Not Resolved]
  - Cardiac failure congestive [Unknown]
  - Peripheral swelling [Not Recovered/Not Resolved]
  - Renal failure [Unknown]

NARRATIVE: CASE EVENT DATE: 2017
